FAERS Safety Report 5604854-2 (Version None)
Quarter: 2008Q1

REPORT INFORMATION
  Report Type: 
  Country: None (occurrence: None)
  Receive Date: 20080128
  Receipt Date: 20080116
  Transmission Date: 20080703
  Serious: Yes (Other)
  Sender: FDA-Public Use
  Company Number: ES-ELI_LILLY_AND_COMPANY-ES200801005321

PATIENT
  Age: 31 Year
  Sex: Male

DRUGS (1)
  1. DULOXETINE HYDROCHLORIDE [Suspect]
     Indication: BIPOLAR DISORDER
     Dosage: 60 MG, DAILY (1/D)
     Route: 048
     Dates: start: 20070216, end: 20070418

REACTIONS (4)
  - ABNORMAL DREAMS [None]
  - AMNESIA [None]
  - INTENTIONAL DRUG MISUSE [None]
  - SOMNAMBULISM [None]
